FAERS Safety Report 7582980-9 (Version None)
Quarter: 2011Q2

REPORT INFORMATION
  Report Type: 
  Country: None (occurrence: None)
  Receive Date: 20110627
  Receipt Date: 20110627
  Transmission Date: 20111010
  Serious: No
  Sender: FDA-Public Use
  Company Number: None

PATIENT
  Age: 55 Year
  Sex: Female
  Weight: 72.5755 kg

DRUGS (2)
  1. TERBINAFINE 250 MGS MIDDLE NECK PHARMACY [Suspect]
     Indication: ONYCHOMYCOSIS
     Dosage: 1 DAILY
     Dates: start: 20100715, end: 20101015
  2. TERBINAFINE 250 MGS MIDDLE NECK PHARMACY [Suspect]
     Indication: ONYCHOMYCOSIS
     Dosage: 1 DAILY
     Dates: start: 20110510, end: 20110610

REACTIONS (1)
  - ALOPECIA [None]
